FAERS Safety Report 9442410 (Version 1)
Quarter: 2013Q3

REPORT INFORMATION
  Report Type: Spontaneous
  Country: US (occurrence: US)
  Receive Date: 20130806
  Receipt Date: 20130806
  Transmission Date: 20140515
  Serious: No
  Sender: FDA-Public Use
  Company Number: US-GLAXOSMITHKLINE-A1021322A

PATIENT
  Age: 76 Year
  Sex: Female

DRUGS (6)
  1. ADVAIR [Suspect]
     Indication: CHRONIC OBSTRUCTIVE PULMONARY DISEASE
     Dosage: 2PUFF TWICE PER DAY
     Route: 055
     Dates: start: 2010
  2. OXYGEN [Concomitant]
  3. COMBIVENT [Concomitant]
  4. PRO-AIR [Concomitant]
  5. LASIX [Concomitant]
  6. BLOOD PRESSURE MEDICATION [Concomitant]

REACTIONS (4)
  - Overdose [Recovering/Resolving]
  - Dyspnoea [Unknown]
  - Malaise [Unknown]
  - Product quality issue [Unknown]
